FAERS Safety Report 5673267-X (Version None)
Quarter: 2008Q2

REPORT INFORMATION
  Report Type: 
  Country: None (occurrence: None)
  Receive Date: 20080219
  Receipt Date: 20071113
  Transmission Date: 20081010
  Serious: No
  Sender: FDA-Public Use
  Company Number: TPA2007A02338

PATIENT
  Age: 47 Year
  Sex: Male
  Weight: 78.0187 kg

DRUGS (3)
  1. ROZEREM [Suspect]
     Indication: INSOMNIA
     Dosage: 8 MG, QHS, PER ORAL
     Route: 048
     Dates: start: 20071025, end: 20071113
  2. ZESTRIL [Concomitant]
  3. PRAVACHOL [Concomitant]

REACTIONS (6)
  - LIP DISORDER [None]
  - LIP SWELLING [None]
  - NASOPHARYNGITIS [None]
  - PHARYNGEAL ERYTHEMA [None]
  - SWELLING FACE [None]
  - SWOLLEN TONGUE [None]
